FAERS Safety Report 9740536 (Version 1)
Quarter: 2013Q4

REPORT INFORMATION
  Report Type: Spontaneous
  Country: US (occurrence: US)
  Receive Date: 20131209
  Receipt Date: 20131209
  Transmission Date: 20140711
  Serious: No
  Sender: FDA-Public Use
  Company Number: US-BIOGENIDEC-2013BI096945

PATIENT
  Sex: Female

DRUGS (4)
  1. TECFIDERA [Suspect]
     Indication: MULTIPLE SCLEROSIS
     Route: 048
     Dates: start: 20130801, end: 20130926
  2. YAZ [Concomitant]
  3. PREDNISONE [Concomitant]
  4. RANITIDINE [Concomitant]

REACTIONS (5)
  - Headache [Unknown]
  - Back pain [Unknown]
  - Flushing [Unknown]
  - Nausea [Unknown]
  - Vomiting [Unknown]
